FAERS Safety Report 10245043 (Version 2)
Quarter: 2014Q3

REPORT INFORMATION
  Report Type: Spontaneous
  Country: US (occurrence: US)
  Receive Date: 20140618
  Receipt Date: 20140912
  Transmission Date: 20150326
  Serious: No
  Sender: FDA-Public Use
  Company Number: US-GALDERMA-US14001212

PATIENT
  Age: 48 Year
  Sex: Female

DRUGS (5)
  1. MIRVASO [Suspect]
     Active Substance: BRIMONIDINE TARTRATE
     Indication: ROSACEA
     Dosage: 0.33%
     Route: 061
     Dates: start: 20140324, end: 20140401
  2. GARNIER MOISTURE RESCUE [Concomitant]
  3. MAYBELLINE FOUNDATION [Concomitant]
     Route: 061
  4. MIRVASO [Suspect]
     Active Substance: BRIMONIDINE TARTRATE
     Dosage: 0.33%
     Route: 061
     Dates: start: 20140405
  5. FACIAL WIPES [Concomitant]
     Route: 061

REACTIONS (2)
  - Drug ineffective [Not Recovered/Not Resolved]
  - Emotional distress [Unknown]

NARRATIVE: CASE EVENT DATE: 20140324
